FAERS Safety Report 4975252-X (Version None)
Quarter: 2006Q2

REPORT INFORMATION
  Report Type: 
  Country: None (occurrence: None)
  Receive Date: 20060418
  Receipt Date: 20060313
  Transmission Date: 20061013
  Serious: Yes (Hospitalization, Other)
  Sender: FDA-Public Use
  Company Number: US-MERCK-0603USA02214

PATIENT
  Age: 71 Year
  Sex: Female
  Weight: 72 kg

DRUGS (5)
  1. VIOXX [Suspect]
     Indication: ARTHRALGIA
     Route: 048
     Dates: start: 20010101, end: 20040301
  2. LIPITOR [Concomitant]
     Route: 065
  3. MAXZIDE [Concomitant]
     Route: 065
  4. FOSAMAX [Concomitant]
     Route: 065
  5. CLARITIN [Concomitant]
     Route: 065

REACTIONS (6)
  - CEREBROVASCULAR ACCIDENT [None]
  - CHEST PAIN [None]
  - DYSPNOEA [None]
  - OVARIAN CYST [None]
  - PULMONARY EMBOLISM [None]
  - THROMBOSIS [None]
